FAERS Safety Report 14921025 (Version 1)
Quarter: 2018Q2

REPORT INFORMATION
  Report Type: Spontaneous
  Country: AT (occurrence: AT)
  Receive Date: 20180521
  Receipt Date: 20180521
  Transmission Date: 20180711
  Serious: Yes (Other)
  Sender: FDA-Public Use
  Company Number: AT-BAUSCH-BL-2018-014105

PATIENT
  Age: 50 Year
  Sex: Male

DRUGS (17)
  1. OMEGAVEN [Suspect]
     Active Substance: FISH OIL
     Route: 065
     Dates: start: 2005
  2. EBETREXAT [Suspect]
     Active Substance: METHOTREXATE SODIUM
     Route: 065
  3. PREDNISOLONE. [Suspect]
     Active Substance: PREDNISOLONE
     Route: 065
     Dates: start: 20080619
  4. PREDNISOLONE. [Suspect]
     Active Substance: PREDNISOLONE
     Route: 065
  5. OMEGAVEN [Suspect]
     Active Substance: FISH OIL
     Indication: GASTROSTOMY
     Route: 065
     Dates: start: 20110627
  6. PREDNISOLONE. [Suspect]
     Active Substance: PREDNISOLONE
     Indication: RHEUMATOID ARTHRITIS
     Route: 065
     Dates: start: 200311
  7. EBETREXAT [Suspect]
     Active Substance: METHOTREXATE SODIUM
     Dosage: IN WEEK
     Route: 065
     Dates: start: 201311
  8. EBETREXAT [Suspect]
     Active Substance: METHOTREXATE SODIUM
     Route: 065
     Dates: start: 20030519
  9. OMEGAVEN [Suspect]
     Active Substance: FISH OIL
     Route: 065
  10. EBETREXAT [Suspect]
     Active Substance: METHOTREXATE SODIUM
     Dosage: IN WEEK
     Route: 065
     Dates: start: 20080409
  11. OMEGAVEN [Suspect]
     Active Substance: FISH OIL
     Route: 065
     Dates: start: 2006
  12. EBETREXAT [Suspect]
     Active Substance: METHOTREXATE SODIUM
     Indication: RHEUMATOID ARTHRITIS
     Dosage: IN WEEK
     Route: 065
  13. EBETREXAT [Suspect]
     Active Substance: METHOTREXATE SODIUM
     Dosage: IN WEEK
     Route: 065
     Dates: start: 20110424, end: 20110627
  14. PREDNISOLONE. [Suspect]
     Active Substance: PREDNISOLONE
     Route: 065
  15. PREDNISOLONE. [Suspect]
     Active Substance: PREDNISOLONE
     Indication: RHEUMATOID ARTHRITIS
     Route: 065
     Dates: start: 20110627
  16. EBETREXAT [Suspect]
     Active Substance: METHOTREXATE SODIUM
     Dosage: IN WEEK
     Route: 065
  17. PREDNISOLONE. [Suspect]
     Active Substance: PREDNISOLONE
     Route: 065
     Dates: start: 2003

REACTIONS (11)
  - Synovectomy [Unknown]
  - Frustration tolerance decreased [Unknown]
  - Joint effusion [Unknown]
  - Condition aggravated [Recovering/Resolving]
  - Platelet count decreased [Recovering/Resolving]
  - Sensation of foreign body [Recovered/Resolved]
  - Arthritis [Unknown]
  - Thrombosis [Unknown]
  - Bronchitis [Unknown]
  - Paracentesis [Unknown]
  - Off label use [Unknown]

NARRATIVE: CASE EVENT DATE: 20080619
